FAERS Safety Report 6485458-9 (Version None)
Quarter: 2009Q4

REPORT INFORMATION
  Report Type: 
  Country: None (occurrence: None)
  Receive Date: 20091204
  Receipt Date: 20091123
  Transmission Date: 20100525
  Serious: Yes (Other)
  Sender: FDA-Public Use
  Company Number: TRP_06612_2009

PATIENT
  Age: 40 Year
  Sex: Female

DRUGS (4)
  1. RIBAVIRIN [Suspect]
     Indication: HEPATITIS C
     Dosage: (1000 MG, DAILY)
  2. PEGINTERFERON ALFA-2A (PEGINTERFERON ALFA-2A) [Suspect]
     Indication: HEPATITIS C
     Dosage: (180 UG 1X/WEEK) ; (135 UG 1X/WEEK) ; (90 UG 1X/WEEK)
  3. PEGINTERFERON ALFA-2A (PEGINTERFERON ALFA-2A) [Suspect]
     Indication: HEPATITIS C
     Dosage: (180 UG 1X/WEEK) ; (135 UG 1X/WEEK) ; (90 UG 1X/WEEK)
  4. PEGINTERFERON ALFA-2A (PEGINTERFERON ALFA-2A) [Suspect]
     Indication: HEPATITIS C
     Dosage: (180 UG 1X/WEEK) ; (135 UG 1X/WEEK) ; (90 UG 1X/WEEK)

REACTIONS (6)
  - FATIGUE [None]
  - GLOSSODYNIA [None]
  - MUCOSAL PIGMENTATION [None]
  - NEUTROPENIA [None]
  - ORAL DISORDER [None]
  - TONGUE PIGMENTATION [None]
